FAERS Safety Report 9818772 (Version 1)
Quarter: 2014Q1

REPORT INFORMATION
  Report Type: Spontaneous
  Country: US (occurrence: US)
  Receive Date: 20140115
  Receipt Date: 20140115
  Transmission Date: 20141002
  Serious: No
  Sender: FDA-Public Use
  Company Number: US-GILEAD-2011-0039448

PATIENT
  Sex: Female

DRUGS (1)
  1. CAYSTON [Suspect]
     Indication: CYSTIC FIBROSIS

REACTIONS (5)
  - Pulmonary congestion [Unknown]
  - Chest discomfort [Unknown]
  - Heart rate increased [Unknown]
  - Wheezing [Unknown]
  - Dyspnoea [Unknown]
